FAERS Safety Report 7883197-0 (Version None)
Quarter: 2011Q4

REPORT INFORMATION
  Report Type: 
  Country: None (occurrence: None)
  Receive Date: 20111031
  Receipt Date: 20110419
  Transmission Date: 20120403
  Serious: Yes (Hospitalization, Disabling, Other)
  Sender: FDA-Public Use
  Company Number: 2010MA004182

PATIENT
  Sex: Female
  Weight: 90.7194 kg

DRUGS (20)
  1. HYDROCHLOROTHIAZIDE [Concomitant]
  2. VICODIN [Concomitant]
  3. REQUIP [Concomitant]
  4. METOCLOPRAMIDE [Suspect]
     Indication: ABDOMINAL PAIN
     Dosage: 10 MG;QID;PO
     Route: 048
     Dates: start: 20010301, end: 20090301
  5. PAXIL [Suspect]
     Dates: start: 20020701
  6. REQUIP [Concomitant]
  7. DOMPERIDONE [Concomitant]
  8. NEXIUM [Concomitant]
  9. PREMARIN [Concomitant]
  10. ALBUTEROL [Concomitant]
  11. ROSUVASTATIN [Concomitant]
  12. ROPINIROLE [Concomitant]
  13. ESOMEPRAZOLE [Concomitant]
  14. LIPITOR [Concomitant]
  15. EFFEXOR [Concomitant]
  16. IBUPROFEN [Concomitant]
  17. AMLODIPINE [Concomitant]
  18. XOPENEX [Concomitant]
  19. ATROVENT [Concomitant]
  20. GABAPENTIN [Concomitant]

REACTIONS (48)
  - NO THERAPEUTIC RESPONSE [None]
  - PNEUMONIA [None]
  - SUPRAVENTRICULAR TACHYCARDIA [None]
  - ABDOMINAL PAIN [None]
  - HAEMATEMESIS [None]
  - HYPERTENSION [None]
  - ECONOMIC PROBLEM [None]
  - MENTAL DISORDER [None]
  - DEPRESSION [None]
  - WEIGHT DECREASED [None]
  - DEPRESSED MOOD [None]
  - ACTIVITIES OF DAILY LIVING IMPAIRED [None]
  - DEFORMITY [None]
  - ANXIETY [None]
  - RESTLESS LEGS SYNDROME [None]
  - HIATUS HERNIA [None]
  - DYSPEPSIA [None]
  - CHRONIC OBSTRUCTIVE PULMONARY DISEASE [None]
  - MULTIPLE INJURIES [None]
  - DYSKINESIA [None]
  - RESTLESSNESS [None]
  - TREMOR [None]
  - NEUROPATHY PERIPHERAL [None]
  - SLEEP APNOEA SYNDROME [None]
  - BALANCE DISORDER [None]
  - GAIT DISTURBANCE [None]
  - ROUTINE HEALTH MAINTENANCE [None]
  - APATHY [None]
  - HEPATIC STEATOSIS [None]
  - DUBIN-JOHNSON SYNDROME [None]
  - ILL-DEFINED DISORDER [None]
  - INAPPROPRIATE SCHEDULE OF DRUG ADMINISTRATION [None]
  - SOMNOLENCE [None]
  - HYPOTHYROIDISM [None]
  - ERUCTATION [None]
  - BLOOD CHOLESTEROL INCREASED [None]
  - TARDIVE DYSKINESIA [None]
  - PAIN [None]
  - HYPOREFLEXIA [None]
  - HEAD TITUBATION [None]
  - RESPIRATORY ALKALOSIS [None]
  - JAW DISORDER [None]
  - NERVOUS SYSTEM DISORDER [None]
  - EXTRAPYRAMIDAL DISORDER [None]
  - INSOMNIA [None]
  - VOMITING [None]
  - HELICOBACTER TEST POSITIVE [None]
  - IMPAIRED GASTRIC EMPTYING [None]
